FAERS Safety Report 25810767 (Version 1)
Quarter: 2025Q3

REPORT INFORMATION
  Report Type: Spontaneous
  Country: US (occurrence: US)
  Receive Date: 20250917
  Receipt Date: 20250917
  Transmission Date: 20251021
  Serious: Yes (Other)
  Sender: BRISTOL-MYERS SQUIBB COMPANY
  Company Number: US-BRISTOL-MYERS SQUIBB COMPANY-2025-125577

PATIENT
  Age: 84 Year
  Sex: Male
  Weight: 104.33 kg

DRUGS (3)
  1. ELIQUIS [Suspect]
     Active Substance: APIXABAN
     Indication: Atrial fibrillation
     Dates: start: 202412
  2. METOPROLOL [Concomitant]
     Active Substance: METOPROLOL
     Indication: Product used for unknown indication
     Dosage: ONCE DAILY
  3. PRAVASTATIN [Concomitant]
     Active Substance: PRAVASTATIN
     Indication: Product used for unknown indication
     Dosage: ONCE DAILY

REACTIONS (2)
  - Diverticulitis intestinal haemorrhagic [Recovering/Resolving]
  - Radiation associated haemorrhage [Unknown]

NARRATIVE: CASE EVENT DATE: 20250721
